FAERS Safety Report 8067917-0 (Version None)
Quarter: 2012Q1

REPORT INFORMATION
  Report Type: 
  Country: None (occurrence: None)
  Receive Date: 20120124
  Receipt Date: 20110831
  Transmission Date: 20120608
  Serious: No
  Sender: FDA-Public Use
  Company Number: US-AMGEN-USASP2011031054

PATIENT
  Age: 78 Year
  Sex: Female
  Weight: 153 kg

DRUGS (5)
  1. VICODIN [Concomitant]
  2. PROLIA [Suspect]
     Indication: OSTEOPOROSIS POSTMENOPAUSAL
     Dosage: 60 MG, Q6MO
     Dates: start: 20110606, end: 20110614
  3. LIPITOR [Concomitant]
  4. TRILIPIX [Concomitant]
  5. DIAZEPAM [Concomitant]

REACTIONS (3)
  - HEADACHE [None]
  - ARTHRALGIA [None]
  - RASH [None]
